FAERS Safety Report 17190978 (Version 1)
Quarter: 2019Q4

REPORT INFORMATION
  Report Type: Report from Study
  Country: None (occurrence: IN)
  Receive Date: 20191223
  Receipt Date: 20191223
  Transmission Date: 20200122
  Serious: Yes (Other)
  Sender: FDA-Public Use
  Company Number: IN-ABBVIE-19K-078-3204983-00

PATIENT
  Age: 55 Year
  Sex: Male

DRUGS (4)
  1. IMBRUVICA [Suspect]
     Active Substance: IBRUTINIB
     Dosage: REDUCE DOSE
     Route: 065
  2. IMBRUVICA [Suspect]
     Active Substance: IBRUTINIB
     Dosage: INCREASED DOSAGE FOR 10 DAYS FORM 02ND TO 12TH DEC 2019
     Route: 065
     Dates: start: 20191202
  3. IMBRUVICA [Suspect]
     Active Substance: IBRUTINIB
     Indication: CHRONIC LYMPHOCYTIC LEUKAEMIA
     Dosage: 90^S/3 CAPS/DAY
     Route: 048
     Dates: start: 20170208
  4. NITROFURANTOIN. [Concomitant]
     Active Substance: NITROFURANTOIN
     Indication: PRODUCT USED FOR UNKNOWN INDICATION
     Dosage: REPORTED AS NIBOFURATOIN
     Route: 048
     Dates: start: 20191206

REACTIONS (4)
  - Urinary tract infection [Recovered/Resolved]
  - Thrombosis [Unknown]
  - Haemorrhage [Recovered/Resolved]
  - Rash [Recovered/Resolved]
